FAERS Safety Report 9113519 (Version 3)
Quarter: 2013Q2

REPORT INFORMATION
  Report Type: Spontaneous
  Country: US (occurrence: US)
  Receive Date: 20130131
  Receipt Date: 20130510
  Transmission Date: 20140414
  Serious: No
  Sender: FDA-Public Use
  Company Number: US-PFIZER INC-2013032970

PATIENT
  Age: 16 Year
  Sex: Male
  Weight: 90 kg

DRUGS (2)
  1. PRISTIQ [Suspect]
     Indication: SOCIAL PHOBIA
     Dosage: 50MG DAILY
     Dates: start: 201211
  2. PRISTIQ [Suspect]
     Dosage: 100MG DAILY

REACTIONS (2)
  - Drug ineffective [Unknown]
  - Off label use [Unknown]
